FAERS Safety Report 4650745-3 (Version None)
Quarter: 2005Q2

REPORT INFORMATION
  Report Type: 
  Country: None (occurrence: None)
  Receive Date: 20050503
  Receipt Date: 20050422
  Transmission Date: 20051028
  Serious: Yes (Other)
  Sender: FDA-Public Use
  Company Number: PHBS2005TW05821

PATIENT
  Age: 35 Year
  Sex: Female
  Weight: 51 kg

DRUGS (1)
  1. ZELMAC [Suspect]
     Dosage: 1 TABLET, BID
     Route: 048

REACTIONS (1)
  - SUICIDAL IDEATION [None]
